FAERS Safety Report 13584063 (Version 1)
Quarter: 2017Q2

REPORT INFORMATION
  Report Type: Spontaneous
  Country: US (occurrence: US)
  Receive Date: 20170525
  Receipt Date: 20170525
  Transmission Date: 20170830
  Serious: Yes (Hospitalization)
  Sender: FDA-Public Use
  Company Number: None

PATIENT
  Age: 73 Year
  Sex: Female

DRUGS (1)
  1. REVLIMID [Suspect]
     Active Substance: LENALIDOMIDE
     Indication: PLASMA CELL MYELOMA
     Dosage: DAILY X21D/28D
     Route: 048
     Dates: start: 20120826

REACTIONS (5)
  - Neutropenia [None]
  - Fall [None]
  - Pain in extremity [None]
  - Refusal of treatment by patient [None]
  - Thrombocytopenia [None]

NARRATIVE: CASE EVENT DATE: 20110823
